FAERS Safety Report 11375970 (Version 1)
Quarter: 2015Q3

REPORT INFORMATION
  Report Type: Other
  Country: GB (occurrence: GB)
  Receive Date: 20150813
  Receipt Date: 20150813
  Transmission Date: 20151125
  Serious: Yes (Other)
  Sender: FDA-Public Use
  Company Number: GB-MYLANLABS-2015M1025998

PATIENT

DRUGS (3)
  1. TRAMADOL. [Concomitant]
     Active Substance: TRAMADOL
     Dosage: UNK (1-2 CAPSULES UP TO FOUR TIMES A DAY)
     Dates: start: 20150304
  2. GABAPENTIN. [Suspect]
     Active Substance: GABAPENTIN
     Dosage: UNK
  3. ZOPICLONE [Concomitant]
     Active Substance: ZOPICLONE
     Dosage: UNK, AS NECESSARY (TAKE ONE AT NIGHT AS NEEDED, MAXIMUM ALTERNATE NIGHTS)
     Dates: start: 20150702

REACTIONS (3)
  - Dizziness [Recovered/Resolved]
  - Swollen tongue [Recovered/Resolved]
  - Malaise [Recovered/Resolved]

NARRATIVE: CASE EVENT DATE: 20150721
